FAERS Safety Report 5648656-X (Version None)
Quarter: 2008Q1

REPORT INFORMATION
  Report Type: 
  Country: None (occurrence: None)
  Receive Date: 20080304
  Receipt Date: 20080228
  Transmission Date: 20080703
  Serious: Yes (Death)
  Sender: FDA-Public Use
  Company Number: A0712449A

PATIENT
  Age: 98 Year
  Sex: Female

DRUGS (2)
  1. COREG [Suspect]
     Indication: CARDIOMYOPATHY
     Dosage: 12.5MG TWICE PER DAY
     Route: 048
  2. NO CONCURRENT MEDICATION [Concomitant]

REACTIONS (1)
  - DEATH [None]
